FAERS Safety Report 19106898 (Version 3)
Quarter: 2021Q2

REPORT INFORMATION
  Report Type: Spontaneous
  Country: US (occurrence: US)
  Receive Date: 20210408
  Receipt Date: 20210505
  Transmission Date: 20210717
  Serious: No
  Sender: FDA-Public Use
  Company Number: US-HETERO-HET2021US00761

PATIENT

DRUGS (3)
  1. SILODOSIN. [Suspect]
     Active Substance: SILODOSIN
     Dosage: 8 MG, O.D. SECOND BOTTLE
     Route: 048
  2. SILODOSIN. [Suspect]
     Active Substance: SILODOSIN
     Indication: URINARY RETENTION
     Dosage: 8 MG, O.D.
     Route: 048
     Dates: start: 20210305
  3. FINASTERIDE. [Concomitant]
     Active Substance: FINASTERIDE
     Indication: URINARY RETENTION
     Dosage: 5 MG
     Route: 065

REACTIONS (3)
  - No adverse event [Unknown]
  - Drug ineffective [Unknown]
  - Product substitution issue [Unknown]

NARRATIVE: CASE EVENT DATE: 20210307
